FAERS Safety Report 8816132 (Version 1)
Quarter: 2012Q4

REPORT INFORMATION
  Report Type: 
  Country: BR (occurrence: BR)
  Receive Date: 20120929
  Receipt Date: 20120929
  Transmission Date: 20130627
  Serious: Yes (Other)
  Sender: FDA-Public Use
  Company Number: BR-ACCORD-014740

PATIENT
  Age: 20 Year
  Sex: Female
  Weight: 54 kg

DRUGS (9)
  1. PACLITAXEL [Suspect]
     Indication: MALIGNANT NEOPLASM OF OVARY
     Route: 042
     Dates: start: 20120712, end: 20120712
  2. CARBOPLATIN [Concomitant]
     Indication: MALIGNANT NEOPLASM OF OVARY
     Route: 042
     Dates: start: 20120712, end: 20120712
  3. DEXAMETHASONE [Concomitant]
     Indication: PREMEDICATION
     Route: 042
     Dates: start: 20120712, end: 20120712
  4. ONDANSETRON [Concomitant]
     Route: 042
     Dates: start: 20120712, end: 20120712
  5. METOCLOPRAMIDE [Concomitant]
     Route: 048
     Dates: start: 20120706, end: 20120806
  6. DIPHENHYDRAMINE [Concomitant]
     Route: 042
     Dates: start: 20120712, end: 20120712
  7. OMEPRAZOLE [Concomitant]
     Route: 048
     Dates: start: 20120706, end: 20120806
  8. RANITIDINE [Concomitant]
     Route: 042
     Dates: start: 20120712, end: 20120712
  9. HYDROCORTISONE [Concomitant]
     Route: 042
     Dates: start: 20120712, end: 20120712

REACTIONS (3)
  - Dyspnoea [Recovered/Resolved]
  - Discomfort [Recovered/Resolved]
  - Hyperaemia [Recovered/Resolved]
